FAERS Safety Report 12632056 (Version 2)
Quarter: 2016Q3

REPORT INFORMATION
  Report Type: Spontaneous
  Country: US (occurrence: US)
  Receive Date: 20160808
  Receipt Date: 20160808
  Transmission Date: 20161109
  Serious: Yes (Hospitalization)
  Sender: FDA-Public Use
  Company Number: US-BEH-2016061814

PATIENT
  Age: 57 Year
  Sex: Male
  Weight: 112 kg

DRUGS (23)
  1. DIPHENHYDRAMINE. [Concomitant]
     Active Substance: DIPHENHYDRAMINE
  2. HIZENTRA [Suspect]
     Active Substance: HUMAN IMMUNOGLOBULIN G
     Indication: IMMUNODEFICIENCY COMMON VARIABLE
     Route: 058
     Dates: start: 20130429
  3. KLOR-CON [Concomitant]
     Active Substance: POTASSIUM CHLORIDE
  4. NEURONTIN [Concomitant]
     Active Substance: GABAPENTIN
  5. FENTANYL. [Concomitant]
     Active Substance: FENTANYL
  6. BUPIVACAINE. [Concomitant]
     Active Substance: BUPIVACAINE
  7. XOPENEX [Concomitant]
     Active Substance: LEVALBUTEROL HYDROCHLORIDE
  8. FLOVENT [Concomitant]
     Active Substance: FLUTICASONE PROPIONATE
  9. SOMA [Concomitant]
     Active Substance: CARISOPRODOL
  10. SEROQUEL [Concomitant]
     Active Substance: QUETIAPINE FUMARATE
  11. EPIPEN [Concomitant]
     Active Substance: EPINEPHRINE
  12. MAXAIR [Concomitant]
     Active Substance: PIRBUTEROL ACETATE
  13. LUNESTA [Concomitant]
     Active Substance: ESZOPICLONE
  14. IMITREX [Concomitant]
     Active Substance: SUMATRIPTAN SUCCINATE
  15. LORAZEPAM. [Concomitant]
     Active Substance: LORAZEPAM
  16. LEXAPRO [Concomitant]
     Active Substance: ESCITALOPRAM OXALATE
  17. LASIX [Concomitant]
     Active Substance: FUROSEMIDE
  18. TESTOSTERONE. [Concomitant]
     Active Substance: TESTOSTERONE
  19. ACCOLATE [Concomitant]
     Active Substance: ZAFIRLUKAST
  20. PROVIGIL [Concomitant]
     Active Substance: MODAFINIL
  21. OMNARIS [Concomitant]
     Active Substance: CICLESONIDE
  22. MORPHINE [Concomitant]
     Active Substance: MORPHINE
  23. ADDERALL [Concomitant]
     Active Substance: AMPHETAMINE ASPARTATE\AMPHETAMINE SULFATE\DEXTROAMPHETAMINE SACCHARATE\DEXTROAMPHETAMINE SULFATE

REACTIONS (1)
  - Pyrexia [Unknown]

NARRATIVE: CASE EVENT DATE: 20160413
